FAERS Safety Report 7009090-3 (Version None)
Quarter: 2010Q3

REPORT INFORMATION
  Report Type: 
  Country: None (occurrence: None)
  Receive Date: 20100923
  Receipt Date: 20100915
  Transmission Date: 20110219
  Serious: Yes (Hospitalization)
  Sender: FDA-Public Use
  Company Number: US-US-EMD SERONO, INC.-7017228

PATIENT
  Sex: Female
  Weight: 86 kg

DRUGS (10)
  1. REBIF [Suspect]
     Indication: MULTIPLE SCLEROSIS
     Route: 058
     Dates: start: 20100813, end: 20100101
  2. REBIF [Suspect]
     Route: 058
     Dates: start: 20100908
  3. SYNTHROID [Suspect]
     Indication: HYPOTHYROIDISM
     Route: 048
     Dates: start: 20020101, end: 20100901
  4. GLUCOPHAGE [Concomitant]
     Indication: DIABETES MELLITUS
  5. AMARYL [Concomitant]
     Indication: DIABETES MELLITUS
  6. LISINOPRIL [Concomitant]
     Indication: HYPERTENSION
  7. ZOCOR [Concomitant]
     Indication: BLOOD CHOLESTEROL INCREASED
  8. NIACIN [Concomitant]
  9. FISH OIL [Concomitant]
  10. FLU SHOT [Concomitant]
     Dates: start: 20100913, end: 20100913

REACTIONS (3)
  - DEPRESSED MOOD [None]
  - THYROID FUNCTION TEST ABNORMAL [None]
  - VENTRICULAR EXTRASYSTOLES [None]
